FAERS Safety Report 21156254 (Version 1)
Quarter: 2022Q3

REPORT INFORMATION
  Report Type: Spontaneous
  Country: US (occurrence: US)
  Receive Date: 20220801
  Receipt Date: 20220801
  Transmission Date: 20221026
  Serious: No
  Sender: FDA-Public Use
  Company Number: US-PADAGIS-2022PAD00145

PATIENT

DRUGS (2)
  1. TESTOSTERONE CYPIONATE [Suspect]
     Active Substance: TESTOSTERONE CYPIONATE
     Indication: Blood testosterone decreased
     Dosage: 100 MG, EVERY 2 WEEKS
     Route: 065
     Dates: start: 202102, end: 202112
  2. TESTOSTERONE CYPIONATE [Suspect]
     Active Substance: TESTOSTERONE CYPIONATE
     Dosage: 150 MG, EVERY 2 WEEKS
     Route: 065
     Dates: start: 202102, end: 202112

REACTIONS (2)
  - Furuncle [Unknown]
  - Acne pustular [Unknown]
